FAERS Safety Report 4767055-6 (Version None)
Quarter: 2005Q3

REPORT INFORMATION
  Report Type: 
  Country: None (occurrence: None)
  Receive Date: 20050913
  Receipt Date: 20050831
  Transmission Date: 20060218
  Serious: Yes (Hospitalization)
  Sender: FDA-Public Use
  Company Number: 2005UW13016

PATIENT
  Age: 39 Year
  Sex: Female
  Weight: 60.3 kg

DRUGS (5)
  1. TOPROL-XL [Suspect]
     Route: 048
     Dates: start: 20000101, end: 20050101
  2. TOPROL-XL [Suspect]
     Route: 048
     Dates: start: 20050101, end: 20050101
  3. TOPROL-XL [Suspect]
     Route: 048
     Dates: start: 20050101
  4. FLONASE [Concomitant]
  5. ASACOL [Concomitant]

REACTIONS (3)
  - ATRIAL TACHYCARDIA [None]
  - BRADYCARDIA [None]
  - VENTRICULAR ARRHYTHMIA [None]
